FAERS Safety Report 19053444 (Version 3)
Quarter: 2021Q3

REPORT INFORMATION
  Report Type: Spontaneous
  Country: JP (occurrence: JP)
  Receive Date: 20210325
  Receipt Date: 20210910
  Transmission Date: 20211014
  Serious: Yes (Other)
  Sender: FDA-Public Use
  Company Number: JP-TAKEDA-2021TJP010443

PATIENT
  Age: 27 Year
  Sex: Male
  Weight: 69.7 kg

DRUGS (11)
  1. ENTYVIO [Suspect]
     Active Substance: VEDOLIZUMAB
     Indication: COLITIS ULCERATIVE
     Dosage: 300 MILLIGRAM
     Route: 041
     Dates: start: 20190205, end: 20210311
  2. PREDONINE [Concomitant]
     Active Substance: PREDNISOLONE
     Indication: COLITIS ULCERATIVE
     Dosage: 6 MILLIGRAM, QD
     Route: 048
     Dates: start: 2010
  3. NEXIUM [Concomitant]
     Active Substance: ESOMEPRAZOLE MAGNESIUM
     Indication: COLITIS ULCERATIVE
     Dosage: 20 MILLIGRAM, QD
     Route: 048
     Dates: start: 2010
  4. CALONAL [Concomitant]
     Active Substance: ACETAMINOPHEN
     Indication: COLITIS ULCERATIVE
     Dosage: 600 MILLIGRAM, TID
     Route: 048
     Dates: start: 2010
  5. RECTABUL [Concomitant]
     Active Substance: BUDESONIDE
     Indication: COLITIS ULCERATIVE
     Dosage: 2 MILLIGRAM, QD
     Route: 054
     Dates: start: 20180403
  6. ACTONEL [Concomitant]
     Active Substance: RISEDRONATE SODIUM
     Indication: OSTEOPOROSIS PROPHYLAXIS
     Dosage: 75 MILLIGRAM, QD
     Route: 048
     Dates: start: 2010
  7. IMURAN [Concomitant]
     Active Substance: AZATHIOPRINE
     Indication: COLITIS ULCERATIVE
     Dosage: 50 MILLIGRAM, BID
     Route: 048
     Dates: start: 2010
  8. LOXONIN [Concomitant]
     Active Substance: LOXOPROFEN SODIUM
     Indication: COLITIS ULCERATIVE
     Dosage: 60 MILLIGRAM, TID
     Route: 048
     Dates: start: 2010
  9. TACROLIMUS MONOHYDRATE [Concomitant]
     Active Substance: TACROLIMUS
     Indication: COLITIS ULCERATIVE
     Dosage: 3 MILLIGRAM, BID
     Route: 048
     Dates: start: 2010
  10. TALION [Concomitant]
     Indication: PRURITUS
     Dosage: 10 MILLIGRAM, BID
     Route: 048
     Dates: start: 2010
  11. ALFAROL [Concomitant]
     Active Substance: ALFACALCIDOL
     Indication: OSTEOPOROSIS PROPHYLAXIS
     Dosage: 0.25 MICROGRAM, QD
     Route: 048
     Dates: start: 2010

REACTIONS (5)
  - Haematochezia [Unknown]
  - Diarrhoea [Recovered/Resolved]
  - Melaena [Recovering/Resolving]
  - Haematochezia [Recovered/Resolved]
  - Condition aggravated [Recovering/Resolving]

NARRATIVE: CASE EVENT DATE: 20200609
